FAERS Safety Report 11003164 (Version 1)
Quarter: 2015Q2

REPORT INFORMATION
  Report Type: Report from Study
  Country: US (occurrence: US)
  Receive Date: 20150409
  Receipt Date: 20150409
  Transmission Date: 20150821
  Serious: Yes (Other)
  Sender: FDA-Public Use
  Company Number: US-AMGEN-USASL2015033508

PATIENT
  Age: 69 Year
  Sex: Male

DRUGS (1)
  1. ENBREL [Suspect]
     Active Substance: ETANERCEPT
     Indication: RHEUMATOID ARTHRITIS
     Dosage: 50 MG, UNK
     Route: 065

REACTIONS (5)
  - Gastroenteritis viral [Unknown]
  - Hyperkeratosis [Unknown]
  - Synovial cyst [Unknown]
  - Nephrolithiasis [Unknown]
  - Localised infection [Unknown]

NARRATIVE: CASE EVENT DATE: 201410
